FAERS Safety Report 13818536 (Version 1)
Quarter: 2017Q3

REPORT INFORMATION
  Report Type: Spontaneous
  Country: GB (occurrence: GB)
  Receive Date: 20170801
  Receipt Date: 20170801
  Transmission Date: 20171127
  Serious: Yes (Hospitalization, Other)
  Sender: FDA-Public Use
  Company Number: PHFR2017GB006064

PATIENT
  Age: 37 Year
  Sex: Female

DRUGS (12)
  1. ONDANSETRON HYDROCHLORIDE. [Suspect]
     Active Substance: ONDANSETRON HYDROCHLORIDE
     Indication: PROPHYLAXIS OF NAUSEA AND VOMITING
     Dosage: 8 MG, QD DOSAGE FORM: UNSPECIFIED
     Route: 042
     Dates: start: 20170530, end: 20170530
  2. ATRACURIUM [Concomitant]
     Active Substance: ATRACURIUM
     Indication: PRODUCT USED FOR UNKNOWN INDICATION
     Dosage: 30 MG, UNK DOSAGE FORM: UNSPECIFIED
     Route: 042
  3. PROPOFOL. [Concomitant]
     Active Substance: PROPOFOL
     Indication: PRODUCT USED FOR UNKNOWN INDICATION
     Dosage: UNK
     Route: 042
  4. DEXAMETHASONE. [Concomitant]
     Active Substance: DEXAMETHASONE
     Indication: PRODUCT USED FOR UNKNOWN INDICATION
     Dosage: 3.6 MG, UNK DOSAGE FORM: UNSPECIFIED
     Route: 042
  5. REMIFENTANIL [Concomitant]
     Active Substance: REMIFENTANIL
     Indication: PRODUCT USED FOR UNKNOWN INDICATION
     Dosage: UNK, UNKNOWN
     Route: 042
  6. TRAMADOL HYDROCHLORIDE. [Interacting]
     Active Substance: TRAMADOL HYDROCHLORIDE
     Indication: PERIOPERATIVE ANALGESIA
     Dosage: 150 MG, QD DOSAGE FORM: UNSPECIFIED
     Route: 042
     Dates: start: 20170530, end: 20170530
  7. MORPHINE [Concomitant]
     Active Substance: MORPHINE
     Indication: PRODUCT USED FOR UNKNOWN INDICATION
     Dosage: 15 MG, UNK DOSAGE FORM: UNSPECIFIED
     Route: 042
  8. PARACETAMOL [Concomitant]
     Active Substance: ACETAMINOPHEN
     Indication: PRODUCT USED FOR UNKNOWN INDICATION
     Dosage: 1 G, UNK DOSAGE FORM: UNSPECIFIED
     Route: 065
  9. TIBOLONE [Concomitant]
     Active Substance: TIBOLONE
     Indication: PRODUCT USED FOR UNKNOWN INDICATION
     Dosage: 2.5 MG, QD DOSAGE FORM: UNSPECIFIED
     Route: 065
  10. RESOLOR [Interacting]
     Active Substance: PRUCALOPRIDE SUCCINATE
     Indication: CONSTIPATION
     Dosage: 2 MG, QD DOSAGE FORM: UNSPECIFIED
     Route: 048
  11. GABAPENTIN. [Concomitant]
     Active Substance: GABAPENTIN
     Indication: PRODUCT USED FOR UNKNOWN INDICATION
     Route: 065
  12. PARECOXIB [Concomitant]
     Active Substance: PARECOXIB
     Indication: PRODUCT USED FOR UNKNOWN INDICATION
     Dosage: 40 MG, UNK DOSAGE FORM: UNSPECIFIED
     Route: 042

REACTIONS (6)
  - Vomiting [Unknown]
  - Serotonin syndrome [Recovering/Resolving]
  - Nausea [Unknown]
  - Somnolence [Unknown]
  - Drug interaction [Unknown]
  - Renal impairment [Unknown]

NARRATIVE: CASE EVENT DATE: 20170530
